FAERS Safety Report 4648803-2 (Version None)
Quarter: 2005Q2

REPORT INFORMATION
  Report Type: 
  Country: None (occurrence: None)
  Receive Date: 20050429
  Receipt Date: 20050421
  Transmission Date: 20051028
  Serious: Yes (Other)
  Sender: FDA-Public Use
  Company Number: SE-JNJFOC-20050403373

PATIENT
  Age: 41 Year
  Sex: Female

DRUGS (7)
  1. CONCERTA [Suspect]
     Route: 049
  2. CONCERTA [Suspect]
     Route: 049
  3. CONCERTA [Suspect]
     Indication: ATTENTION DEFICIT/HYPERACTIVITY DISORDER
     Route: 049
  4. EFFEXOR [Concomitant]
     Route: 049
  5. STILNOCT [Concomitant]
     Route: 049
  6. WARAN [Concomitant]
     Route: 049
  7. XANOR [Concomitant]
     Route: 049

REACTIONS (2)
  - ROAD TRAFFIC ACCIDENT [None]
  - SPEECH DISORDER [None]
